FAERS Safety Report 6495701-8 (Version None)
Quarter: 2009Q4

REPORT INFORMATION
  Report Type: 
  Country: None (occurrence: None)
  Receive Date: 20091214
  Receipt Date: 20090803
  Transmission Date: 20100525
  Serious: Yes (Hospitalization)
  Sender: FDA-Public Use
  Company Number: US-BRISTOL-MYERS SQUIBB COMPANY-14726350

PATIENT
  Age: 34 Year
  Sex: Female
  Weight: 61 kg

DRUGS (3)
  1. ABILIFY [Suspect]
     Indication: MOOD SWINGS
     Dosage: INCREASED TO 10MG ON 18APR09
     Dates: start: 20090312
  2. ABILIFY [Suspect]
     Indication: IRRITABILITY
     Dosage: INCREASED TO 10MG ON 18APR09
     Dates: start: 20090312
  3. ABILIFY [Suspect]
     Indication: DEPRESSION
     Dosage: INCREASED TO 10MG ON 18APR09
     Dates: start: 20090312

REACTIONS (1)
  - SUICIDE ATTEMPT [None]
